FAERS Safety Report 4944710-6 (Version None)
Quarter: 2006Q1

REPORT INFORMATION
  Report Type: 
  Country: None (occurrence: None)
  Receive Date: 20060315
  Receipt Date: 20060203
  Transmission Date: 20060701
  Serious: Yes (Other)
  Sender: FDA-Public Use
  Company Number: IN-ABBOTT-06P-078-0324154-00

PATIENT
  Age: 26 Year
  Sex: Female

DRUGS (1)
  1. LEPTOS [Suspect]
     Indication: OBESITY
     Route: 048

REACTIONS (1)
  - OVARIAN CYST TORSION [None]
